FAERS Safety Report 19630753 (Version 1)
Quarter: 2021Q3

REPORT INFORMATION
  Report Type: Spontaneous
  Country: US (occurrence: US)
  Receive Date: 20210728
  Receipt Date: 20210728
  Transmission Date: 20211014
  Serious: No
  Sender: FDA-Public Use
  Company Number: US-SA-2021SA242589

PATIENT
  Age: 39 Year
  Sex: Female

DRUGS (3)
  1. HYOSCYAMINE. [Concomitant]
     Active Substance: HYOSCYAMINE
     Dosage: UNK
  2. METHYLPREDNISOLONE. [Concomitant]
     Active Substance: METHYLPREDNISOLONE
     Dosage: UNK
  3. DUPIXENT [Suspect]
     Active Substance: DUPILUMAB
     Indication: ASTHMA
     Dosage: 200 MG, QOW
     Route: 058
     Dates: start: 20200715

REACTIONS (1)
  - Impaired quality of life [Not Recovered/Not Resolved]
